FAERS Safety Report 10179424 (Version 1)
Quarter: 2014Q2

REPORT INFORMATION
  Report Type: Spontaneous
  Country: US (occurrence: None)
  Receive Date: 20140416
  Receipt Date: 20140416
  Transmission Date: 20141212
  Serious: Yes (Other)
  Sender: FDA-Public Use
  Company Number: 163-POMAL-14020762

PATIENT
  Age: 68 Year
  Sex: Female

DRUGS (24)
  1. POMALYST (POMALIDOMIDE) (4 MILLIGRAM, CAPSULES) [Suspect]
     Indication: PLASMA CELL MYELOMA
     Dosage: 21 IN 21D, TEMPORARILY INTERRUPTED
     Route: 048
     Dates: start: 201312
  2. CALCITONIN (CALCITONIN) [Concomitant]
  3. BIAXIN (CLARITHROMYCIN) [Concomitant]
  4. TRAZODONE (TRAZODONE) [Concomitant]
  5. SPIRONOLACTONE (SPIRONOLACTONE) [Concomitant]
  6. PULMICORT (BUDESONIDE) [Concomitant]
  7. PYRIDOXINE (PYRIDOXINE) [Concomitant]
  8. VITAMINS (VITAMINS) [Concomitant]
  9. COMPAZINE (PROCHLORPERAZINE EDISYLATE) [Concomitant]
  10. OMEPRAZOLE (OMEPRAZOLE) [Concomitant]
  11. NORCO (VICODIN) [Concomitant]
  12. NATURAL TEARS (HYPROMELLOSE) [Concomitant]
  13. NADOLOL (NADOLOL) [Concomitant]
  14. ACIDOPHILUS (LACTOBACILLUS ACIDOPHILUS) [Concomitant]
  15. ALBUTEROL (SALBUTAMOL) [Concomitant]
  16. ARTIFICIAL TEARS (ARTIFICIAL TEARS) [Concomitant]
  17. ASPIRIN (ACETYLSALICYLIC ACID) [Concomitant]
  18. DEXAMETHASONE (DEXAMETHASONE) [Concomitant]
  19. MELATONIN (MELATONIN) [Concomitant]
  20. MAGNESIUM OXIDE (MAGNESIUM OXIDE) [Concomitant]
  21. FIBERCON (POLYCARBOPHIL CALCIUM) [Concomitant]
  22. LORAZEPAM (LORAZEPAM) [Concomitant]
  23. KLONOPIN (CLONAZEPAM) [Concomitant]
  24. IMIPRAMINE (IMIPRAMINE) [Concomitant]

REACTIONS (2)
  - White blood cell count decreased [None]
  - Neutrophil count decreased [None]
